FAERS Safety Report 15282003 (Version 1)
Quarter: 2018Q3

REPORT INFORMATION
  Report Type: Spontaneous
  Country: CA (occurrence: CA)
  Receive Date: 20180731
  Receipt Date: 20180731
  Transmission Date: 20181010
  Serious: Yes (Other)
  Sender: FDA-Public Use
  Company Number: None

PATIENT
  Age: 67 Year
  Sex: Female
  Weight: 89 kg

DRUGS (5)
  1. ESCITALOPRAM [Concomitant]
     Active Substance: ESCITALOPRAM OXALATE
  2. VALPROIC ACID. [Concomitant]
     Active Substance: VALPROIC ACID
  3. OLMESARTAN [Concomitant]
     Active Substance: OLMESARTAN
  4. IMATINIB [Suspect]
     Active Substance: IMATINIB
     Indication: CHRONIC MYELOID LEUKAEMIA
     Route: 048
     Dates: start: 20180508, end: 20180731
  5. IMATINIB [Suspect]
     Active Substance: IMATINIB

REACTIONS (5)
  - Abdominal pain [None]
  - Nausea [None]
  - Weight decreased [None]
  - Feeding disorder [None]
  - Diarrhoea [None]

NARRATIVE: CASE EVENT DATE: 20180508
